FAERS Safety Report 9716202 (Version 1)
Quarter: 2013Q4

REPORT INFORMATION
  Report Type: Spontaneous
  Country: JP (occurrence: JP)
  Receive Date: 20131127
  Receipt Date: 20131127
  Transmission Date: 20140711
  Serious: Yes (Other)
  Sender: FDA-Public Use
  Company Number: JP-ASTELLAS-2013JP012992

PATIENT
  Age: 51 Year
  Sex: Male

DRUGS (1)
  1. FUNGUARD [Suspect]
     Indication: MYCOTIC ENDOPHTHALMITIS
     Dosage: 400 MG, UNKNOWN/D
     Route: 041

REACTIONS (2)
  - Drug ineffective for unapproved indication [Unknown]
  - Mycotic endophthalmitis [Recovering/Resolving]
